FAERS Safety Report 9669188 (Version 2)
Quarter: 2013Q4

REPORT INFORMATION
  Report Type: Spontaneous
  Country: IE (occurrence: IE)
  Receive Date: 20131105
  Receipt Date: 20131105
  Transmission Date: 20140711
  Serious: Yes (Other)
  Sender: FDA-Public Use
  Company Number: IE-ASTRAZENECA-2013SE73825

PATIENT
  Age: 79 Year
  Sex: Male

DRUGS (7)
  1. CASODEX [Suspect]
     Indication: NEOPLASM MALIGNANT
     Route: 048
     Dates: start: 201206
  2. COMBODART [Suspect]
     Indication: BENIGN PROSTATIC HYPERPLASIA
     Dosage: 0.5/0.4 MG
     Route: 065
     Dates: start: 20120530, end: 201206
  3. COMBODART [Suspect]
     Indication: BENIGN PROSTATIC HYPERPLASIA
     Route: 065
     Dates: start: 20120530
  4. NUSEALS ASPIRIN [Concomitant]
  5. BISOPROLOL [Concomitant]
  6. LOSEC MUPS [Concomitant]
  7. BENETOR [Concomitant]

REACTIONS (28)
  - Dyspnoea [Not Recovered/Not Resolved]
  - Heart rate irregular [Unknown]
  - Dizziness [Not Recovered/Not Resolved]
  - Asthenia [Not Recovered/Not Resolved]
  - Nausea [Not Recovered/Not Resolved]
  - Fatigue [Not Recovered/Not Resolved]
  - Constipation [Not Recovered/Not Resolved]
  - Gynaecomastia [Not Recovered/Not Resolved]
  - Breast pain [Not Recovered/Not Resolved]
  - Prostate cancer [Unknown]
  - Alopecia [Not Recovered/Not Resolved]
  - Malaise [Not Recovered/Not Resolved]
  - Breast swelling [Not Recovered/Not Resolved]
  - Arthralgia [Unknown]
  - Myalgia [Unknown]
  - Hypoaesthesia [Unknown]
  - Headache [Unknown]
  - Abdominal distension [Unknown]
  - Testicular pain [Unknown]
  - Hyperhidrosis [Unknown]
  - Insomnia [Unknown]
  - Tension headache [Unknown]
  - Somnolence [Unknown]
  - Chest discomfort [Unknown]
  - Abdominal discomfort [Unknown]
  - Decreased appetite [Unknown]
  - Dyspepsia [Unknown]
  - Hot flush [Unknown]
